FAERS Safety Report 5772498-8 (Version None)
Quarter: 2008Q2

REPORT INFORMATION
  Report Type: 
  Country: None (occurrence: None)
  Receive Date: 20080613
  Receipt Date: 20080605
  Transmission Date: 20081010
  Serious: Yes (Hospitalization)
  Sender: FDA-Public Use
  Company Number: US-ABBOTT-08P-163-0456470-00

PATIENT
  Sex: Male
  Weight: 130.3 kg

DRUGS (11)
  1. SYNTHROID [Suspect]
     Indication: HYPOTHYROIDISM
     Route: 048
     Dates: start: 20010701
  2. SYNTHROID [Suspect]
     Route: 048
     Dates: end: 20010701
  3. COREG CR [Interacting]
     Indication: CARDIOMYOPATHY
     Route: 048
     Dates: start: 20080501
  4. CYTAMEL [Concomitant]
     Indication: HYPOTHYROIDISM
     Route: 048
     Dates: start: 20080501
  5. METOPROLOL TARTRATE [Concomitant]
     Indication: CARDIOMYOPATHY
     Dates: start: 20010101
  6. ENALAPRIL MALEATE [Concomitant]
     Indication: CARDIOMYOPATHY
     Dates: start: 20010101
  7. FUROSEMIDE [Concomitant]
     Indication: CARDIOMYOPATHY
     Dates: start: 20010101
  8. BUMETANIDE [Concomitant]
     Indication: CARDIOMYOPATHY
     Dates: start: 20010101
  9. DIGOXIN [Concomitant]
     Indication: CARDIOMYOPATHY
     Route: 048
  10. SPIRONOLACTONE [Concomitant]
     Indication: CARDIOMYOPATHY
     Route: 048
  11. LOSARTAN POTASSIUM [Concomitant]
     Indication: CARDIOMYOPATHY
     Route: 048

REACTIONS (3)
  - DRUG INTERACTION [None]
  - MALAISE [None]
  - THYROID FUNCTION TEST ABNORMAL [None]
